FAERS Safety Report 4446464-9 (Version None)
Quarter: 2004Q3

REPORT INFORMATION
  Report Type: 
  Country: None (occurrence: None)
  Receive Date: 20040907
  Receipt Date: 20040820
  Transmission Date: 20050211
  Serious: Yes (Hospitalization)
  Sender: FDA-Public Use
  Company Number: 156440

PATIENT
  Age: 32 Year
  Sex: Female
  Weight: 73.9363 kg

DRUGS (2)
  1. AVONEX [Suspect]
     Indication: MULTIPLE SCLEROSIS
     Dosage: 30 MCG QW IM
     Route: 030
     Dates: start: 20011102, end: 20020101
  2. XANAX [Concomitant]

REACTIONS (3)
  - ABDOMINAL PAIN [None]
  - DRUG HYPERSENSITIVITY [None]
  - WHITE BLOOD CELL COUNT INCREASED [None]
